FAERS Safety Report 12226026 (Version 1)
Quarter: 2016Q1

REPORT INFORMATION
  Report Type: Spontaneous
  Country: FR (occurrence: FR)
  Receive Date: 20160331
  Receipt Date: 20160331
  Transmission Date: 20160526
  Serious: Yes (Death)
  Sender: FDA-Public Use
  Company Number: FR-JNJFOC-20160327448

PATIENT
  Age: 88 Year
  Sex: Female

DRUGS (8)
  1. LEVOTHYROX [Concomitant]
     Active Substance: LEVOTHYROXINE
     Route: 048
     Dates: start: 20151209
  2. ALDACTONE [Suspect]
     Active Substance: SPIRONOLACTONE
     Indication: CARDIOVASCULAR DISORDER
     Dosage: 12.5 MG QD AT MID DAY
     Route: 048
     Dates: start: 20151215, end: 20160102
  3. IMOVANE [Concomitant]
     Active Substance: ZOPICLONE
     Dosage: 3.75 MG
     Route: 065
     Dates: start: 20151209
  4. LACTULOSE. [Concomitant]
     Active Substance: LACTULOSE
     Route: 065
     Dates: start: 20151222, end: 20160102
  5. XARELTO [Suspect]
     Active Substance: RIVAROXABAN
     Indication: CEREBROVASCULAR ACCIDENT PROPHYLAXIS
     Route: 048
     Dates: start: 20151209, end: 20160102
  6. LASILIX [Suspect]
     Active Substance: FUROSEMIDE
     Indication: PRODUCT USED FOR UNKNOWN INDICATION
     Route: 048
     Dates: start: 20151214
  7. XARELTO [Suspect]
     Active Substance: RIVAROXABAN
     Indication: ATRIAL FIBRILLATION
     Route: 048
     Dates: start: 20151209, end: 20160102
  8. PAROXETINE [Concomitant]
     Active Substance: PAROXETINE\PAROXETINE HYDROCHLORIDE
     Route: 065
     Dates: end: 20160102

REACTIONS (2)
  - Hepatitis fulminant [Fatal]
  - Renal failure [Fatal]

NARRATIVE: CASE EVENT DATE: 20160102
